FAERS Safety Report 21143689 (Version 1)
Quarter: 2022Q3

REPORT INFORMATION
  Report Type: Spontaneous
  Country: US (occurrence: None)
  Receive Date: 20220728
  Receipt Date: 20220728
  Transmission Date: 20221026
  Serious: Yes (Life-Threatening)
  Sender: FDA-Public Use
  Company Number: None

PATIENT
  Age: 17 Year
  Sex: Female

DRUGS (1)
  1. BUPROPION [Suspect]
     Active Substance: BUPROPION
     Dosage: 150MG QD PO?
     Route: 048
     Dates: start: 20220309, end: 20220311

REACTIONS (4)
  - Urticaria [None]
  - Skin fissures [None]
  - Nausea [None]
  - Vomiting [None]
